FAERS Safety Report 9101628 (Version 2)
Quarter: 2013Q1

REPORT INFORMATION
  Report Type: Spontaneous
  Country: FR (occurrence: FR)
  Receive Date: 20130218
  Receipt Date: 20130315
  Transmission Date: 20140127
  Serious: Yes (Life-Threatening, Hospitalization)
  Sender: FDA-Public Use
  Company Number: FR-JNJFOC-20130206723

PATIENT
  Age: 57 Year
  Sex: Female
  Weight: 85 kg

DRUGS (4)
  1. REMICADE [Suspect]
     Indication: POLYARTHRITIS
     Dosage: 850 MG PER CYCLE, FOR 3 COURSES. THIRD INFUSION
     Route: 042
     Dates: start: 20121022, end: 20121022
  2. REMICADE [Suspect]
     Indication: POLYARTHRITIS
     Dosage: 10MG/KG
     Route: 042
     Dates: start: 20120910
  3. METHOTREXATE BELLON [Suspect]
     Indication: POLYARTHRITIS
     Dosage: 2.1429 MGFOR 5 MONTHS. 10 MG INITIALLY AND THEN 15 MG PER WEEK.
     Route: 048
     Dates: start: 201205, end: 20121022
  4. PREDNISONE [Suspect]
     Indication: POLYARTHRITIS
     Route: 048
     Dates: start: 201105

REACTIONS (5)
  - Lung infection [Recovered/Resolved]
  - Acute respiratory failure [Recovered/Resolved]
  - Interstitial lung disease [Recovered/Resolved]
  - Pneumocystis jirovecii pneumonia [Recovered/Resolved]
  - Headache [Unknown]
